FAERS Safety Report 23968352 (Version 1)
Quarter: 2024Q2

REPORT INFORMATION
  Report Type: Spontaneous
  Country: US (occurrence: None)
  Receive Date: 20240612
  Receipt Date: 20240612
  Transmission Date: 20240716
  Serious: Yes (Other)
  Sender: FDA-Public Use
  Company Number: None

PATIENT
  Sex: Female

DRUGS (3)
  1. QUETIAPINE [Suspect]
     Active Substance: QUETIAPINE
     Indication: Bipolar disorder
     Dates: start: 20231031
  2. LITHIUM CARBONATE [Concomitant]
     Active Substance: LITHIUM CARBONATE
  3. BUPROPION [Concomitant]
     Active Substance: BUPROPION

REACTIONS (2)
  - Abortion spontaneous [None]
  - Maternal exposure timing unspecified [None]
